FAERS Safety Report 6591154-X (Version None)
Quarter: 2010Q1

REPORT INFORMATION
  Report Type: 
  Country: None (occurrence: None)
  Receive Date: 20100219
  Receipt Date: 20091215
  Transmission Date: 20100710
  Serious: No
  Sender: FDA-Public Use
  Company Number: US-BRISTOL-MYERS SQUIBB COMPANY-14850507

PATIENT
  Age: 50 Year
  Sex: Female

DRUGS (1)
  1. KENALOG [Suspect]
     Indication: HYPERSENSITIVITY
     Dosage: 40MG/M.L/10M.L
     Route: 030
     Dates: start: 20020101

REACTIONS (1)
  - INJECTION SITE PAIN [None]
